FAERS Safety Report 8077793-8 (Version None)
Quarter: 2012Q1

REPORT INFORMATION
  Report Type: 
  Country: None (occurrence: None)
  Receive Date: 20120127
  Receipt Date: 20120123
  Transmission Date: 20120608
  Serious: Yes (Hospitalization, Disabling, Other)
  Sender: FDA-Public Use
  Company Number: US-PFIZER INC-2010051938

PATIENT
  Sex: Male
  Weight: 129 kg

DRUGS (9)
  1. PHENOBARBITAL [Concomitant]
     Indication: EPILEPSY
     Dosage: 100 MG, 3X/DAY
     Route: 048
  2. CELEXA [Concomitant]
     Indication: DEPRESSION
     Dosage: 20 MG, UNK
  3. LYRICA [Suspect]
     Indication: EPILEPSY
     Dosage: UNK
     Route: 048
     Dates: start: 20070101, end: 20080101
  4. KLONOPIN [Suspect]
     Dosage: UNK
  5. VALIUM [Suspect]
     Dosage: UNK
  6. TRAZODONE HYDROCHLORIDE [Concomitant]
     Indication: SLEEP DISORDER
     Dosage: 200 MG, AT BED TIME
  7. SEROQUEL [Concomitant]
     Indication: BIPOLAR DISORDER
     Dosage: UNK
  8. SEROQUEL [Concomitant]
     Indication: SLEEP DISORDER
  9. CARBATROL [Concomitant]
     Indication: EPILEPSY
     Dosage: UNK
     Route: 048

REACTIONS (6)
  - MOTOR DYSFUNCTION [None]
  - ENURESIS [None]
  - FEELING ABNORMAL [None]
  - SUICIDE ATTEMPT [None]
  - NEUROMUSCULAR BLOCKADE [None]
  - INTENTIONAL OVERDOSE [None]
